FAERS Safety Report 4937665-1 (Version None)
Quarter: 2006Q1

REPORT INFORMATION
  Report Type: 
  Country: None (occurrence: None)
  Receive Date: 20060308
  Receipt Date: 20060308
  Transmission Date: 20060701
  Serious: Yes (Hospitalization)
  Sender: FDA-Public Use
  Company Number: None

PATIENT
  Age: 48 Year
  Sex: Male

DRUGS (4)
  1. OXALIPLATIN [Suspect]
     Indication: RECTAL CANCER
     Dosage: 87 MG Q WK X 6 IV DURING CHEMO/RADIATION TX 6 WKS
     Route: 042
     Dates: start: 20051121, end: 20060227
  2. FLUOROURACIL [Suspect]
     Indication: RECTAL CANCER
     Dosage: 436 MG / DAY CIVI X 6 WKS
     Dates: start: 20051121, end: 20060101
  3. BEVACIZUMAB [Suspect]
     Indication: RECTAL CANCER
     Dosage: 468 MG Q 2 WKS IV
     Route: 042
     Dates: start: 20051121, end: 20051219
  4. LIPITOR [Concomitant]

REACTIONS (11)
  - ABDOMINAL DISTENSION [None]
  - ABDOMINAL PAIN [None]
  - BLOOD GLUCOSE INCREASED [None]
  - BODY TEMPERATURE INCREASED [None]
  - GASTROINTESTINAL STOMA COMPLICATION [None]
  - INFREQUENT BOWEL MOVEMENTS [None]
  - NAUSEA [None]
  - POSTOPERATIVE ILEUS [None]
  - POSTOPERATIVE WOUND INFECTION [None]
  - SMALL INTESTINAL OBSTRUCTION [None]
  - WOUND DRAINAGE [None]
